FAERS Safety Report 4304106-7 (Version None)
Quarter: 2004Q1

REPORT INFORMATION
  Report Type: 
  Country: None (occurrence: None)
  Receive Date: 20040223
  Receipt Date: 20040102
  Transmission Date: 20041129
  Serious: No
  Sender: FDA-Public Use
  Company Number: PHEH2003US11090

PATIENT
  Age: 41 Year
  Sex: Female
  Weight: 66.7 kg

DRUGS (4)
  1. ZELNORM [Suspect]
     Indication: IRRITABLE BOWEL SYNDROME
     Dosage: 6 MG, BID, ORAL; 3 MG, BID, ORAL;2 MG, TID, ORAL
     Route: 048
     Dates: start: 20031125
  2. COLACE [Concomitant]
  3. CHLORIAZEPOXIDE W/CLIDINIUM BROMIDE (CLIDINIUM BROMIDE, CHLORIDIAZEPOX [Concomitant]
  4. PREVACID [Concomitant]

REACTIONS (3)
  - EYE MOVEMENT DISORDER [None]
  - HEADACHE [None]
  - SINUS CONGESTION [None]
